FAERS Safety Report 15594490 (Version 1)
Quarter: 2018Q4

REPORT INFORMATION
  Report Type: Spontaneous
  Country: IT (occurrence: IT)
  Receive Date: 20181106
  Receipt Date: 20181106
  Transmission Date: 20190205
  Serious: Yes (Hospitalization)
  Sender: FDA-Public Use
  Company Number: IT-BAUSCH-BL-2018-030408

PATIENT
  Age: 62 Year
  Sex: Male

DRUGS (3)
  1. METHYLPREDNISOLONE. [Concomitant]
     Active Substance: METHYLPREDNISOLONE
     Indication: RHEUMATOID ARTHRITIS
     Dates: start: 201611
  2. IBUPROFEN. [Concomitant]
     Active Substance: IBUPROFEN
     Indication: RHEUMATOID ARTHRITIS
     Dates: start: 201611
  3. RIFAXIMIN. [Suspect]
     Active Substance: RIFAXIMIN
     Indication: DIARRHOEA HAEMORRHAGIC
     Route: 048
     Dates: start: 20160120

REACTIONS (7)
  - Diarrhoea haemorrhagic [Recovered/Resolved]
  - Weight decreased [Recovered/Resolved]
  - Abdominal pain [Unknown]
  - Microcytic anaemia [Recovered/Resolved]
  - Drug ineffective for unapproved indication [Unknown]
  - Fatigue [Recovered/Resolved]
  - Pyrexia [Unknown]
